FAERS Safety Report 9003862 (Version 1)
Quarter: 2013Q1

REPORT INFORMATION
  Report Type: Spontaneous
  Country: US (occurrence: US)
  Receive Date: 20130108
  Receipt Date: 20130108
  Transmission Date: 20140127
  Serious: No
  Sender: FDA-Public Use
  Company Number: US-GLAXOSMITHKLINE-A0997541A

PATIENT
  Age: 30 Year
  Sex: Female

DRUGS (8)
  1. LOVAZA [Suspect]
     Indication: BLOOD TRIGLYCERIDES INCREASED
     Dosage: 2CAP TWICE PER DAY
     Route: 048
     Dates: start: 201202
  2. NORCO [Concomitant]
  3. IMITREX [Concomitant]
  4. ZANAFLEX [Concomitant]
  5. B12 [Concomitant]
  6. VALTREX [Concomitant]
  7. CLONIDINE [Concomitant]
  8. SEROQUEL [Concomitant]

REACTIONS (2)
  - Urine alcohol test positive [Not Recovered/Not Resolved]
  - Urine odour abnormal [Unknown]
